FAERS Safety Report 15297090 (Version 2)
Quarter: 2018Q3

REPORT INFORMATION
  Report Type: Report from Study
  Country: US (occurrence: US)
  Receive Date: 20180820
  Receipt Date: 20180828
  Transmission Date: 20181010
  Serious: Yes (Other)
  Sender: FDA-Public Use
  Company Number: US-SA-2018SA220103

PATIENT
  Age: 55 Year
  Sex: Male

DRUGS (2)
  1. ALEMTUZUMAB [Suspect]
     Active Substance: ALEMTUZUMAB
     Dosage: UNK
     Route: 041
  2. ALEMTUZUMAB [Suspect]
     Active Substance: ALEMTUZUMAB
     Indication: MULTIPLE SCLEROSIS
     Dosage: UNK UNK, UNK
     Route: 041

REACTIONS (8)
  - Weight decreased [Unknown]
  - Multiple sclerosis [Unknown]
  - Mycobacterium avium complex infection [Unknown]
  - Gait disturbance [Unknown]
  - Malaise [Unknown]
  - Drug ineffective [Unknown]
  - Immunosuppression [Unknown]
  - Hypertension [Unknown]
